FAERS Safety Report 6109487-X (Version None)
Quarter: 2009Q1

REPORT INFORMATION
  Report Type: 
  Country: None (occurrence: None)
  Receive Date: 20090306
  Receipt Date: 20090225
  Transmission Date: 20090719
  Serious: Yes (Death, Other)
  Sender: FDA-Public Use
  Company Number: 57069

PATIENT
  Age: 54 Year
  Sex: Female

DRUGS (1)
  1. CARBOPLATIN [Suspect]
     Indication: BREAST CANCER
     Dosage: CYC
     Dates: start: 20090129

REACTIONS (3)
  - CAECITIS [None]
  - CARDIO-RESPIRATORY ARREST [None]
  - NEUTROPENIA [None]
